FAERS Safety Report 9511605 (Version 2)
Quarter: 2013Q4

REPORT INFORMATION
  Report Type: Report from Study
  Country: US (occurrence: US)
  Receive Date: 20130910
  Receipt Date: 20131121
  Transmission Date: 20140711
  Serious: Yes (Death, Hospitalization, Other)
  Sender: FDA-Public Use
  Company Number: PHEH2013US018885

PATIENT
  Sex: Female

DRUGS (2)
  1. GLEEVEC [Suspect]
     Indication: ACUTE LYMPHOCYTIC LEUKAEMIA
     Dosage: 400 MG, ONE AND HALF DAILY
     Route: 048
  2. GLEEVEC [Suspect]
     Dosage: 600 MG, DAILY
     Route: 048

REACTIONS (4)
  - Deep vein thrombosis [Fatal]
  - Pulmonary embolism [Fatal]
  - Hip fracture [Unknown]
  - Fall [Unknown]
